FAERS Safety Report 23478486 (Version 1)
Quarter: 2024Q1

REPORT INFORMATION
  Report Type: Report from Study
  Country: US (occurrence: US)
  Receive Date: 20240204
  Receipt Date: 20240204
  Transmission Date: 20240410
  Serious: No
  Sender: FDA-Public Use
  Company Number: US-EXELIXIS-CABO-23070939

PATIENT
  Sex: Male

DRUGS (2)
  1. CABOMETYX [Suspect]
     Active Substance: CABOZANTINIB S-MALATE
     Indication: Renal cancer
     Dosage: 40 MG, QD
     Route: 048
  2. METAMUCIL [Suspect]
     Active Substance: PLANTAGO SEED
     Indication: Constipation
     Dosage: UNK

REACTIONS (5)
  - Fatigue [Unknown]
  - Constipation [Recovering/Resolving]
  - Malaise [Recovering/Resolving]
  - Hypersomnia [Unknown]
  - Nausea [Unknown]
